FAERS Safety Report 8803515 (Version 2)
Quarter: 2012Q4

REPORT INFORMATION
  Report Type: 
  Country: AU (occurrence: AU)
  Receive Date: 20120924
  Receipt Date: 20121008
  Transmission Date: 20130627
  Serious: Yes (Hospitalization)
  Sender: FDA-Public Use
  Company Number: PHHY2012AU081242

PATIENT
  Sex: Female

DRUGS (2)
  1. CLOZARIL [Suspect]
     Indication: SCHIZOPHRENIA
     Dosage: 350 mg, (200/ 150)
     Dates: start: 20001214
  2. CITALOPRAM [Concomitant]
     Indication: DEPRESSION
     Dosage: 20 mg, mane
     Route: 048

REACTIONS (11)
  - Dysfunctional uterine bleeding [Unknown]
  - Eating disorder [Unknown]
  - Stress [Recovering/Resolving]
  - Psychotic disorder [Recovering/Resolving]
  - Paranoia [Recovering/Resolving]
  - Depressed mood [Recovering/Resolving]
  - Hallucination, auditory [Recovering/Resolving]
  - Antipsychotic drug level increased [Recovering/Resolving]
  - Headache [Recovering/Resolving]
  - Vomiting [Recovering/Resolving]
  - Dizziness [Unknown]
